FAERS Safety Report 7262293-5 (Version None)
Quarter: 2011Q1

REPORT INFORMATION
  Report Type: 
  Country: None (occurrence: None)
  Receive Date: 20110130
  Receipt Date: 20101112
  Transmission Date: 20110831
  Serious: No
  Sender: FDA-Public Use
  Company Number: US-ABBOTT-10P-163-0685751-00

PATIENT
  Sex: Female
  Weight: 65.83 kg

DRUGS (12)
  1. VITAMIN D [Concomitant]
     Indication: VITAMIN SUPPLEMENTATION
  2. ASCORBIC ACID [Concomitant]
     Indication: VITAMIN SUPPLEMENTATION
  3. HUMIRA [Suspect]
     Indication: RHEUMATOID ARTHRITIS
     Dates: start: 20100901
  4. ADVIL [Concomitant]
     Indication: PAIN
  5. MULTI-VITAMIN [Concomitant]
     Indication: VITAMIN SUPPLEMENTATION
  6. MEDROL [Concomitant]
     Indication: RHEUMATOID ARTHRITIS
  7. LOVAZA [Concomitant]
     Indication: VITAMIN SUPPLEMENTATION
  8. FOLIC ACID [Concomitant]
     Indication: VITAMIN SUPPLEMENTATION
  9. METHOTREXATE [Concomitant]
     Indication: RHEUMATOID ARTHRITIS
  10. MODURETIC 5-50 [Concomitant]
     Indication: RHEUMATOID ARTHRITIS
     Dosage: 5/50 MG
  11. NATURAL VITAMIN E WITH SILIUM [Concomitant]
     Indication: VITAMIN SUPPLEMENTATION
  12. GLUCOGEL [Concomitant]
     Indication: RHEUMATOID ARTHRITIS

REACTIONS (7)
  - COUGH [None]
  - FATIGUE [None]
  - INJECTION SITE HAEMATOMA [None]
  - INJECTION SITE PAIN [None]
  - HEADACHE [None]
  - OROPHARYNGEAL PAIN [None]
  - NASOPHARYNGITIS [None]
